FAERS Safety Report 21855124 (Version 2)
Quarter: 2023Q1

REPORT INFORMATION
  Report Type: Spontaneous
  Country: US (occurrence: US)
  Receive Date: 20230112
  Receipt Date: 20230116
  Transmission Date: 20230418
  Serious: Yes (Other)
  Sender: FDA-Public Use
  Company Number: US-PFIZER INC-PV202300006180

PATIENT
  Age: 88 Year
  Sex: Female

DRUGS (1)
  1. IBRANCE [Suspect]
     Active Substance: PALBOCICLIB
     Indication: Breast cancer female
     Dosage: 100 MG

REACTIONS (12)
  - Thalamus haemorrhage [Recovering/Resolving]
  - Chronic kidney disease [Unknown]
  - Cerebrovascular accident [Recovering/Resolving]
  - Fatigue [Unknown]
  - Lung disorder [Unknown]
  - Sleep apnoea syndrome [Unknown]
  - Neoplasm progression [Unknown]
  - Hypertension [Unknown]
  - Arteriosclerosis [Unknown]
  - Coronary artery disease [Unknown]
  - Anxiety disorder [Unknown]
  - Osteoporosis [Unknown]

NARRATIVE: CASE EVENT DATE: 20220201
